FAERS Safety Report 8401178-5 (Version None)
Quarter: 2012Q2

REPORT INFORMATION
  Report Type: 
  Country: None (occurrence: None)
  Receive Date: 20120530
  Receipt Date: 20120530
  Transmission Date: 20120825
  Serious: Yes (Other)
  Sender: FDA-Public Use
  Company Number: None

PATIENT
  Age: 41 Year
  Sex: Female
  Weight: 63.5036 kg

DRUGS (1)
  1. DARVOCET-N 50 [Suspect]
     Indication: MYALGIA
     Dosage: 650 TAB 1 TIME DAY

REACTIONS (5)
  - MUSCULOSKELETAL STIFFNESS [None]
  - VISION BLURRED [None]
  - LOSS OF CONSCIOUSNESS [None]
  - HEADACHE [None]
  - DIZZINESS [None]
